FAERS Safety Report 7422084-9 (Version None)
Quarter: 2011Q2

REPORT INFORMATION
  Report Type: 
  Country: None (occurrence: None)
  Receive Date: 20110418
  Receipt Date: 20110323
  Transmission Date: 20111010
  Serious: No
  Sender: FDA-Public Use
  Company Number: US-B.I. PHARMACEUTICALS,INC./RIDGEFIELD-2011-BP-09316BP

PATIENT
  Sex: Female

DRUGS (5)
  1. XIXIZEPAM [Concomitant]
     Indication: HEPATITIS C
  2. SYMBICORT [Concomitant]
     Indication: CHRONIC OBSTRUCTIVE PULMONARY DISEASE
  3. PROVIGIL [Concomitant]
     Indication: HEPATITIS C
  4. SPIRIVA [Suspect]
     Indication: CHRONIC OBSTRUCTIVE PULMONARY DISEASE
     Dosage: 18 MCG
     Route: 055
     Dates: start: 20050101
  5. SPIRIVA [Suspect]
     Indication: EMPHYSEMA

REACTIONS (1)
  - HAEMORRHOIDAL HAEMORRHAGE [None]
